FAERS Safety Report 6022544-1 (Version None)
Quarter: 2008Q4

REPORT INFORMATION
  Report Type: 
  Country: None (occurrence: None)
  Receive Date: 20081230
  Receipt Date: 20081219
  Transmission Date: 20090506
  Serious: Yes (Other)
  Sender: FDA-Public Use
  Company Number: PHHY2008JP32309

PATIENT
  Age: 1 Year
  Sex: Male
  Weight: 9.3 kg

DRUGS (3)
  1. TEGRETOL [Suspect]
     Indication: CONVULSION
     Dosage: 460 MG, UNK
     Route: 048
     Dates: start: 20081211
  2. TEGRETOL [Suspect]
     Indication: GASTROENTERITIS VIRAL
     Dosage: 5 MG/KG
     Route: 048
  3. TEGRETOL [Suspect]
     Dosage: 50 MG/KG
     Route: 048

REACTIONS (2)
  - GASTRIC LAVAGE [None]
  - OVERDOSE [None]
